FAERS Safety Report 18289465 (Version 1)
Quarter: 2020Q3

REPORT INFORMATION
  Report Type: Spontaneous
  Country: US (occurrence: US)
  Receive Date: 20200921
  Receipt Date: 20200921
  Transmission Date: 20201103
  Serious: No
  Sender: FDA-Public Use
  Company Number: None

PATIENT
  Sex: Female
  Weight: 108.8 kg

DRUGS (15)
  1. IBRANCE [Suspect]
     Active Substance: PALBOCICLIB
     Indication: BREAST CANCER
     Route: 048
     Dates: start: 20200813, end: 20200921
  2. INJECTAFER [Concomitant]
     Active Substance: FERRIC CARBOXYMALTOSE
  3. ASPIRIN 81 [Concomitant]
     Active Substance: ASPIRIN
  4. CALCIUM 500+D [Concomitant]
     Active Substance: CALCIUM\VITAMIN D
  5. L?LYSINE HCL [Concomitant]
  6. NYSTATIN TOPICAL [Concomitant]
  7. VENOFER [Concomitant]
     Active Substance: IRON SUCROSE
  8. XARELTO [Concomitant]
     Active Substance: RIVAROXABAN
  9. LETROZOLE. [Concomitant]
     Active Substance: LETROZOLE
  10. ATENOLOL. [Concomitant]
     Active Substance: ATENOLOL
  11. GABAPENTIN. [Concomitant]
     Active Substance: GABAPENTIN
  12. PROLIA [Concomitant]
     Active Substance: DENOSUMAB
  13. SIMVASTATIN. [Concomitant]
     Active Substance: SIMVASTATIN
  14. MULTIVITAMIN ADULTS [Concomitant]
  15. XGEVA [Concomitant]
     Active Substance: DENOSUMAB

REACTIONS (1)
  - Disease progression [None]
